FAERS Safety Report 7236904-4 (Version None)
Quarter: 2011Q1

REPORT INFORMATION
  Report Type: 
  Country: None (occurrence: None)
  Receive Date: 20110120
  Receipt Date: 20110117
  Transmission Date: 20110831
  Serious: Yes (Hospitalization)
  Sender: FDA-Public Use
  Company Number: FR-BRISTOL-MYERS SQUIBB COMPANY-15414972

PATIENT
  Age: 47 Year
  Sex: Female
  Weight: 50 kg

DRUGS (2)
  1. PAROXETINE [Concomitant]
     Route: 048
  2. SPRYCEL [Suspect]
     Indication: CHRONIC MYELOID LEUKAEMIA
     Dosage: INTER ON 15JUN10,RESARTED ON 06JUL10
     Route: 048
     Dates: start: 20080318

REACTIONS (4)
  - ACUTE RESPIRATORY FAILURE [None]
  - PNEUMONIA LEGIONELLA [None]
  - PLEURAL EFFUSION [None]
  - SHOCK [None]
